FAERS Safety Report 12945564 (Version 6)
Quarter: 2017Q2

REPORT INFORMATION
  Report Type: Report from Study
  Country: CN (occurrence: CN)
  Receive Date: 20161116
  Receipt Date: 20170620
  Transmission Date: 20170830
  Serious: Yes (Congenital Anomaly, Other)
  Sender: FDA-Public Use
  Company Number: CN-VIIV HEALTHCARE LIMITED-CN2016168929

PATIENT
  Age: 0 Day
  Sex: Male

DRUGS (6)
  1. TENOFOVIR DISOPROXIL FUMARATE. [Suspect]
     Active Substance: TENOFOVIR DISOPROXIL FUMARATE
     Indication: HEPATITIS B
     Dosage: 300 MG, QD
     Route: 064
  2. PROGESTERONE. [Concomitant]
     Active Substance: PROGESTERONE
     Route: 064
  3. LAMIVUDINE. [Suspect]
     Active Substance: LAMIVUDINE
     Indication: HEPATITIS B
     Dosage: 300 MG, QD
     Route: 064
  4. LAMIVUDINE. [Suspect]
     Active Substance: LAMIVUDINE
     Dosage: 100 UNKNOWN, UNK
     Route: 048
  5. FOLATE [Concomitant]
     Active Substance: FOLATE SODIUM
     Dosage: UNK
     Route: 064
  6. LEVOTHYROXINE SODIUM. [Concomitant]
     Active Substance: LEVOTHYROXINE SODIUM
     Dosage: UNK
     Route: 064

REACTIONS (2)
  - Hypospadias [Unknown]
  - Foetal exposure during pregnancy [Recovered/Resolved]

NARRATIVE: CASE EVENT DATE: 20160302
